FAERS Safety Report 6935069-3 (Version None)
Quarter: 2010Q3

REPORT INFORMATION
  Report Type: 
  Country: None (occurrence: None)
  Receive Date: 20100822
  Receipt Date: 20100811
  Transmission Date: 20110219
  Serious: Yes (Other)
  Sender: FDA-Public Use
  Company Number: PHHO2010NL12400

PATIENT

DRUGS (4)
  1. BLINDED ACTIVE CONTROL A.C. [Suspect]
     Indication: DERMATITIS ATOPIC
     Dosage: DOUBLE BLIND
  2. ELIDEL [Suspect]
     Indication: DERMATITIS ATOPIC
     Dosage: DOUBLE BLIND
  3. BLINDED NO TREATMENT RECEIVED NOMED [Suspect]
     Indication: DERMATITIS ATOPIC
     Dosage: DOUBLE BLIND
  4. BLINDED PLACEBO PLACEBO [Suspect]
     Indication: DERMATITIS ATOPIC
     Dosage: DOUBLE BLIND

REACTIONS (1)
  - LYMPHOMA [None]
